FAERS Safety Report 26087276 (Version 1)
Quarter: 2025Q4

REPORT INFORMATION
  Report Type: Spontaneous
  Country: US (occurrence: None)
  Receive Date: 20251124
  Receipt Date: 20251124
  Transmission Date: 20260118
  Serious: Yes (Hospitalization)
  Sender: FDA-CTU
  Company Number: None

PATIENT
  Age: 40 Year
  Sex: Female

DRUGS (9)
  1. SKYRIZI [Suspect]
     Active Substance: RISANKIZUMAB-RZAA
     Indication: Psoriasis
     Dosage: OTHER FREQUENCY : Q84 DAYS;?
     Route: 058
     Dates: start: 20250218
  2. SKYRIZI [Suspect]
     Active Substance: RISANKIZUMAB-RZAA
     Indication: Eczema
  3. HYDROXYZINE HCL 1OMG TABLETS [Concomitant]
  4. PROZAC 40MG CAPSULES [Concomitant]
  5. SEROQUEL 200MG TABLETS [Concomitant]
  6. CENTRUM TABLETS [Concomitant]
  7. VITAMIN B-121000MCG TABLETS [Concomitant]
  8. VITAMIN C 1000MG LIQUID [Concomitant]
  9. VITAMIN D 1,000IU SOFTGELS [Concomitant]

REACTIONS (2)
  - Ovarian cancer [None]
  - Sepsis [None]

NARRATIVE: CASE EVENT DATE: 20251001
